FAERS Safety Report 7354587-X (Version None)
Quarter: 2011Q1

REPORT INFORMATION
  Report Type: 
  Country: None (occurrence: None)
  Receive Date: 20110316
  Receipt Date: 20110308
  Transmission Date: 20110831
  Serious: Yes (Death, Hospitalization)
  Sender: FDA-Public Use
  Company Number: JP-JNJFOC-20101208675

PATIENT
  Sex: Female
  Weight: 53 kg

DRUGS (6)
  1. DOXIL [Suspect]
     Indication: OVARIAN CANCER RECURRENT
     Dosage: CYCLE 1
     Route: 042
  2. RESTAMIN [Concomitant]
     Indication: PROPHYLAXIS
     Route: 048
  3. ALBUMIN (HUMAN) [Concomitant]
     Route: 041
  4. GRANISETRON HCL [Concomitant]
     Indication: PROPHYLAXIS
     Route: 042
  5. DECADRON [Concomitant]
     Indication: PROPHYLAXIS
     Route: 042
  6. PREDOPA [Concomitant]
     Indication: METASTASES TO CENTRAL NERVOUS SYSTEM
     Route: 041

REACTIONS (2)
  - DEHYDRATION [None]
  - RESPIRATORY FAILURE [None]
